FAERS Safety Report 8434733-7 (Version None)
Quarter: 2012Q2

REPORT INFORMATION
  Report Type: 
  Country: None (occurrence: None)
  Receive Date: 20120614
  Receipt Date: 20120611
  Transmission Date: 20120825
  Serious: Yes (Death)
  Sender: FDA-Public Use
  Company Number: JP-ELI_LILLY_AND_COMPANY-JP201206003351

PATIENT
  Age: 72 Year
  Sex: Male

DRUGS (4)
  1. PANVITAN [Concomitant]
     Dosage: 1 G, UNK
     Route: 048
     Dates: start: 20111101, end: 20120427
  2. ALIMTA [Suspect]
     Dosage: 700 MG, UNK
     Route: 042
     Dates: start: 20111109, end: 20120403
  3. ZOMETA [Concomitant]
     Dosage: 4 MG, UNK
     Route: 042
     Dates: start: 20120207, end: 20120313
  4. ACETAMINOPHEN [Concomitant]
     Dosage: 950 MG, UNK
     Route: 048
     Dates: start: 20120207, end: 20120413

REACTIONS (1)
  - INTERSTITIAL LUNG DISEASE [None]
